FAERS Safety Report 23254146 (Version 1)
Quarter: 2023Q4

REPORT INFORMATION
  Report Type: Report from Study
  Country: NL (occurrence: NL)
  Receive Date: 20231202
  Receipt Date: 20231202
  Transmission Date: 20240110
  Serious: Yes (Other)
  Sender: FDA-Public Use
  Company Number: NL-UCBSA-2023003760

PATIENT
  Age: 50 Year
  Sex: Female

DRUGS (3)
  1. EVENITY [Suspect]
     Active Substance: ROMOSOZUMAB-AQQG
     Indication: Osteoporosis
     Dosage: 210 MILLIGRAM, MONTHLY (QM)
     Route: 065
     Dates: start: 20221202
  2. EVENITY [Suspect]
     Active Substance: ROMOSOZUMAB-AQQG
     Dosage: 105 MILLIGRAM, 1X PER MONTH 2 INJECTIONS
     Route: 065
     Dates: start: 20230131
  3. EVENITY [Suspect]
     Active Substance: ROMOSOZUMAB-AQQG
     Dosage: 105 MILLIGRAM, 1X PER MONTH 2 INJECTIONS
     Route: 065

REACTIONS (11)
  - Spinal compression fracture [Not Recovered/Not Resolved]
  - Crepitations [Recovered/Resolved]
  - Drug ineffective [Unknown]
  - Pain in jaw [Not Recovered/Not Resolved]
  - Feeling abnormal [Not Recovered/Not Resolved]
  - Tooth deposit [Recovered/Resolved]
  - Myalgia [Recovered/Resolved]
  - Palpitations [Recovered/Resolved]
  - Agitation [Recovered/Resolved]
  - Headache [Recovered/Resolved]
  - Jaw disorder [Recovered/Resolved]

NARRATIVE: CASE EVENT DATE: 20221202
